FAERS Safety Report 16017359 (Version 3)
Quarter: 2019Q1

REPORT INFORMATION
  Report Type: Spontaneous
  Country: JP (occurrence: JP)
  Receive Date: 20190228
  Receipt Date: 20190307
  Transmission Date: 20190418
  Serious: Yes (Other)
  Sender: FDA-Public Use
  Company Number: JP-PFIZER INC-2019083970

PATIENT
  Age: 79 Year
  Sex: Female

DRUGS (1)
  1. AMLODIN [Suspect]
     Active Substance: AMLODIPINE BESYLATE
     Dosage: UNK

REACTIONS (5)
  - International normalised ratio increased [Unknown]
  - Atrial fibrillation [Unknown]
  - Gastrointestinal polyp haemorrhage [Unknown]
  - Palpitations [Unknown]
  - Anaemia [Unknown]
